FAERS Safety Report 23653911 (Version 1)
Quarter: 2024Q1

REPORT INFORMATION
  Report Type: Spontaneous
  Country: MA (occurrence: MA)
  Receive Date: 20240320
  Receipt Date: 20240320
  Transmission Date: 20240410
  Serious: No
  Sender: FDA-Public Use
  Company Number: MA-PFIZER INC-PV202400027945

PATIENT
  Age: 12 Year
  Sex: Male

DRUGS (1)
  1. GENOTROPIN [Suspect]
     Active Substance: SOMATROPIN
     Dosage: 0.9 MG, DAILY
     Route: 058
     Dates: start: 20220428

REACTIONS (2)
  - Poor quality product administered [Unknown]
  - Product colour issue [Unknown]

NARRATIVE: CASE EVENT DATE: 20240226
